FAERS Safety Report 14879811 (Version 4)
Quarter: 2018Q2

REPORT INFORMATION
  Report Type: Report from Study
  Country: US (occurrence: US)
  Receive Date: 20180511
  Receipt Date: 20180606
  Transmission Date: 20180711
  Serious: Yes (Hospitalization)
  Sender: FDA-Public Use
  Company Number: US-BIOGEN-2018BI00571605

PATIENT
  Age: 63 Year
  Sex: Male

DRUGS (1)
  1. AVONEX [Suspect]
     Active Substance: INTERFERON BETA-1A
     Indication: MULTIPLE SCLEROSIS
     Dosage: 1/4 DOSE WEEK 1, 1/2 DOSE WEEK 2, 3/4 DOSE WEEK 3, FULL DOSE WEEK 4
     Route: 030
     Dates: start: 20180424, end: 201805

REACTIONS (9)
  - Hypotension [Unknown]
  - Dehydration [Recovered/Resolved]
  - Sepsis [Unknown]
  - Fall [Recovered/Resolved]
  - Syncope [Unknown]
  - Chest pain [Unknown]
  - Dyspnoea [Recovered/Resolved]
  - White blood cell count increased [Unknown]
  - Asthenia [Recovered/Resolved]

NARRATIVE: CASE EVENT DATE: 20180424
